FAERS Safety Report 8243979-2 (Version None)
Quarter: 2012Q1

REPORT INFORMATION
  Report Type: 
  Country: None (occurrence: None)
  Receive Date: 20120329
  Receipt Date: 20111219
  Transmission Date: 20120608
  Serious: No
  Sender: FDA-Public Use
  Company Number: US-MYLANLABS-2011S1025758

PATIENT
  Sex: Female

DRUGS (1)
  1. ESTRADIOL [Suspect]
     Indication: HORMONE REPLACEMENT THERAPY
     Dosage: QWEEK
     Route: 062
     Dates: start: 20110701, end: 20110701

REACTIONS (3)
  - APPLICATION SITE PRURITUS [None]
  - APPLICATION SITE SWELLING [None]
  - APPLICATION SITE ERYTHEMA [None]
